FAERS Safety Report 4973112-1 (Version None)
Quarter: 2006Q2

REPORT INFORMATION
  Report Type: 
  Country: None (occurrence: None)
  Receive Date: 20060414
  Receipt Date: 20050822
  Transmission Date: 20061013
  Serious: Yes (Hospitalization)
  Sender: FDA-Public Use
  Company Number: US-MERCK-0508USA03655

PATIENT
  Age: 84 Year
  Sex: Female
  Weight: 71 kg

DRUGS (6)
  1. VIOXX [Suspect]
     Indication: OSTEOARTHRITIS
     Route: 048
     Dates: start: 19990101, end: 20040901
  2. AVAPRO [Concomitant]
     Route: 065
  3. GLYBURIDE [Concomitant]
     Route: 065
  4. NORVASC [Concomitant]
     Route: 065
  5. TOPROL-XL [Concomitant]
     Route: 065
  6. HYDRODIURIL [Concomitant]
     Route: 048

REACTIONS (14)
  - AORTIC ARTERIOSCLEROSIS [None]
  - AORTIC DISORDER [None]
  - ASTHENIA [None]
  - CARDIOMEGALY [None]
  - CEREBROVASCULAR ACCIDENT [None]
  - CONFUSIONAL STATE [None]
  - CRANIAL NERVE DISORDER [None]
  - DIABETES MELLITUS [None]
  - HEADACHE [None]
  - HYPERTENSION [None]
  - HYPOAESTHESIA [None]
  - MICROANGIOPATHY [None]
  - PHARYNGOLARYNGEAL PAIN [None]
  - SPEECH DISORDER [None]
